FAERS Safety Report 8355233-9 (Version None)
Quarter: 2012Q2

REPORT INFORMATION
  Report Type: 
  Country: None (occurrence: None)
  Receive Date: 20120511
  Receipt Date: 20110518
  Transmission Date: 20120825
  Serious: No
  Sender: FDA-Public Use
  Company Number: US-TEVA-2011002471

PATIENT
  Sex: Female
  Weight: 63.56 kg

DRUGS (2)
  1. NUVIGIL [Suspect]
     Indication: FATIGUE
     Route: 048
     Dates: start: 20110507, end: 20110517
  2. LEXAPRO [Concomitant]
     Dates: start: 20010101

REACTIONS (2)
  - DRUG INEFFECTIVE [None]
  - FATIGUE [None]
